FAERS Safety Report 4471962-1 (Version None)
Quarter: 2004Q4

REPORT INFORMATION
  Report Type: 
  Country: None (occurrence: None)
  Receive Date: 20041007
  Receipt Date: 20040924
  Transmission Date: 20050328
  Serious: Yes (Other)
  Sender: FDA-Public Use
  Company Number: 2004069653

PATIENT
  Age: 30 Year
  Sex: Female

DRUGS (2)
  1. NICORETTE PATCH (NICOTINE) [Suspect]
     Indication: SMOKING CESSATION THERAPY
     Dosage: 15MG/16H, TRANSDERMAL
     Route: 062
     Dates: start: 20040726, end: 20040909
  2. ISOTRETINOIN [Concomitant]

REACTIONS (2)
  - DRUG EXPOSURE DURING PREGNANCY [None]
  - INTRA-UTERINE DEATH [None]
